FAERS Safety Report 7373631-7 (Version None)
Quarter: 2011Q1

REPORT INFORMATION
  Report Type: 
  Country: None (occurrence: None)
  Receive Date: 20110325
  Receipt Date: 20110228
  Transmission Date: 20110831
  Serious: Yes (Hospitalization, Other)
  Sender: FDA-Public Use
  Company Number: US-BAYER-201039992NA

PATIENT
  Sex: Female

DRUGS (3)
  1. LEVAQUIN [Concomitant]
     Indication: PULMONARY EMBOLISM
     Dosage: 500 MG, UNK
     Route: 048
     Dates: start: 20091119
  2. YAZ [Suspect]
     Route: 048
     Dates: start: 20071001, end: 20071121
  3. YAZ [Suspect]
     Dosage: UNK
     Dates: start: 20080129

REACTIONS (1)
  - PULMONARY EMBOLISM [None]
